FAERS Safety Report 14630408 (Version 3)
Quarter: 2019Q2

REPORT INFORMATION
  Report Type: Report from Study
  Country: FR (occurrence: US)
  Receive Date: 20180313
  Receipt Date: 20190527
  Transmission Date: 20190711
  Serious: Yes (Death, Hospitalization, Other)
  Sender: FDA-Public Use
  Company Number: FR-BRISTOL-MYERS SQUIBB COMPANY-BMS-2018-023513

PATIENT
  Age: 48 Year
  Sex: Male

DRUGS (1)
  1. NIVOLUMAB [Suspect]
     Active Substance: NIVOLUMAB
     Indication: MALIGNANT MELANOMA
     Dosage: 406 MG, Q2WK
     Route: 042
     Dates: start: 20160902

REACTIONS (17)
  - Scrotal oedema [Unknown]
  - Hyponatraemia [Unknown]
  - Blood lactic acid increased [Unknown]
  - Sepsis [Fatal]
  - Generalised oedema [Unknown]
  - Liver injury [Unknown]
  - Hypotension [Unknown]
  - Adrenal insufficiency [Unknown]
  - Respiratory failure [Unknown]
  - Acidosis [Unknown]
  - Metabolic acidosis [Unknown]
  - Hypoglycaemia [Unknown]
  - Anuria [Unknown]
  - Multiple organ dysfunction syndrome [Fatal]
  - Disseminated intravascular coagulation [Unknown]
  - Dehydration [Unknown]
  - Ascites [Unknown]

NARRATIVE: CASE EVENT DATE: 20180303
